FAERS Safety Report 23308435 (Version 1)
Quarter: 2023Q4

REPORT INFORMATION
  Report Type: Spontaneous
  Country: HR (occurrence: HR)
  Receive Date: 20231218
  Receipt Date: 20231218
  Transmission Date: 20240109
  Serious: Yes (Other)
  Sender: FDA-Public Use
  Company Number: None

PATIENT
  Age: 60 Year
  Weight: 100 kg

DRUGS (3)
  1. CLOZAPINE [Suspect]
     Active Substance: CLOZAPINE
     Indication: Product used for unknown indication
     Route: 048
     Dates: start: 20230930, end: 20230930
  2. VENLAFAXINE [Suspect]
     Active Substance: VENLAFAXINE HYDROCHLORIDE
     Indication: Product used for unknown indication
     Dosage: UNK
     Route: 048
     Dates: start: 20230930, end: 20230930
  3. ALPRAZOLAM [Suspect]
     Active Substance: ALPRAZOLAM
     Indication: Product used for unknown indication
     Dosage: 3 TO 4 MG
     Route: 048
     Dates: start: 20230930, end: 20230930

REACTIONS (5)
  - Pneumonia aspiration [Recovering/Resolving]
  - Intentional overdose [Unknown]
  - Hallucinations, mixed [Unknown]
  - Suicide attempt [Unknown]
  - Disorientation [Unknown]

NARRATIVE: CASE EVENT DATE: 20230930
